FAERS Safety Report 23571314 (Version 3)
Quarter: 2024Q2

REPORT INFORMATION
  Report Type: Spontaneous
  Country: US (occurrence: US)
  Receive Date: 20240227
  Receipt Date: 20240513
  Transmission Date: 20240715
  Serious: No
  Sender: FDA-Public Use
  Company Number: US-PFIZER INC-202400048641

PATIENT
  Age: 72 Year
  Sex: Female
  Weight: 88.435 kg

DRUGS (5)
  1. PAXLOVID [Suspect]
     Active Substance: NIRMATRELVIR\RITONAVIR
     Indication: COVID-19 treatment
     Dosage: UNK
     Route: 048
     Dates: start: 20240209, end: 20240214
  2. TOPROL XL [Concomitant]
     Active Substance: METOPROLOL SUCCINATE
     Indication: Heart rate increased
     Dosage: 50 MG, 1X/DAY
     Dates: start: 2004
  3. DULOXETINE [Concomitant]
     Active Substance: DULOXETINE
     Indication: Depression
     Dosage: 20 MG, 1X/DAY
  4. AZELASTINE HYDROCHLORIDE [Concomitant]
     Active Substance: AZELASTINE HYDROCHLORIDE
     Indication: Allergic sinusitis
     Dosage: 4 DF, 2X/DAY
     Route: 045
     Dates: start: 2023
  5. LATANOPROST [Concomitant]
     Active Substance: LATANOPROST
     Indication: Intraocular pressure test
     Dosage: 1 DF IN EACH EYE, DAILY
     Route: 047
     Dates: start: 2023

REACTIONS (2)
  - COVID-19 [Recovered/Resolved]
  - Disease recurrence [Recovered/Resolved]

NARRATIVE: CASE EVENT DATE: 20240218
